FAERS Safety Report 14224077 (Version 1)
Quarter: 2017Q4

REPORT INFORMATION
  Report Type: Spontaneous
  Country: US (occurrence: US)
  Receive Date: 20171124
  Receipt Date: 20171124
  Transmission Date: 20180321
  Serious: No
  Sender: FDA-Public Use
  Company Number: None

PATIENT
  Age: 28 Year
  Sex: Male
  Weight: 74.25 kg

DRUGS (1)
  1. BISACODYL. [Suspect]
     Active Substance: BISACODYL
     Indication: CONSTIPATION
     Dosage: ?          QUANTITY:2 TABLET(S);OTHER FREQUENCY:ONE TIME;?
     Route: 048
     Dates: start: 20171124, end: 20171124

REACTIONS (2)
  - Loss of consciousness [None]
  - Abdominal pain [None]

NARRATIVE: CASE EVENT DATE: 20171124
